FAERS Safety Report 7503521-8 (Version None)
Quarter: 2011Q2

REPORT INFORMATION
  Report Type: 
  Country: None (occurrence: None)
  Receive Date: 20110525
  Receipt Date: 20110516
  Transmission Date: 20111010
  Serious: Yes (Hospitalization)
  Sender: FDA-Public Use
  Company Number: ES-ROCHE-777936

PATIENT
  Sex: Male
  Weight: 90 kg

DRUGS (3)
  1. LEVETIRACETAM [Concomitant]
     Dates: start: 20070101
  2. BEVACIZUMAB [Suspect]
     Indication: GLIOBLASTOMA MULTIFORME
     Dosage: DATE OF LAST DOSE PRIOR TO SAE: 05 MAY 2011
     Route: 042
     Dates: start: 20101223
  3. TEMOZOLOMIDE [Suspect]
     Indication: GLIOBLASTOMA MULTIFORME
     Dosage: DATE OF LAST DOSE PRIOR TO SAE: 08 MAY 2011
     Route: 048
     Dates: start: 20101223

REACTIONS (1)
  - EPILEPSY [None]
